FAERS Safety Report 16524592 (Version 1)
Quarter: 2019Q3

REPORT INFORMATION
  Report Type: Spontaneous
  Country: FR (occurrence: FR)
  Receive Date: 20190703
  Receipt Date: 20190703
  Transmission Date: 20191004
  Serious: Yes (Other)
  Sender: FDA-Public Use
  Company Number: FR-ACTELION-A-CH2019-192367

PATIENT
  Age: 74 Year
  Sex: Male

DRUGS (2)
  1. EPOPROSTENOL SODIUM. [Suspect]
     Active Substance: EPOPROSTENOL SODIUM
     Indication: PULMONARY VENO-OCCLUSIVE DISEASE
     Dosage: 10 NG/KG, PER MIN
     Route: 042
  2. BOSENTAN. [Suspect]
     Active Substance: BOSENTAN
     Indication: PULMONARY ARTERIAL HYPERTENSION
     Route: 048

REACTIONS (7)
  - Micrococcus test positive [Recovered/Resolved]
  - Catheter management [Recovered/Resolved]
  - Fatigue [Recovered/Resolved]
  - Blood culture positive [Recovered/Resolved]
  - Dyspnoea [Recovered/Resolved]
  - C-reactive protein increased [Recovered/Resolved]
  - Device related infection [Recovered/Resolved]
